FAERS Safety Report 7644032-9 (Version None)
Quarter: 2011Q3

REPORT INFORMATION
  Report Type: 
  Country: None (occurrence: None)
  Receive Date: 20110729
  Receipt Date: 20110728
  Transmission Date: 20111222
  Serious: Yes (Other)
  Sender: FDA-Public Use
  Company Number: JP-BRISTOL-MYERS SQUIBB COMPANY-15895790

PATIENT
  Age: 69 Year
  Sex: Female
  Weight: 67 kg

DRUGS (3)
  1. SELBEX [Concomitant]
  2. CELECOXIB [Concomitant]
     Indication: RHEUMATOID ARTHRITIS
  3. ORENCIA [Suspect]
     Dosage: THERAPY DATES:5JAN11,19JAN11(3RD) NO OF INF:3
     Route: 041
     Dates: start: 20101222, end: 20110119

REACTIONS (1)
  - LIVER DISORDER [None]
